FAERS Safety Report 10256697 (Version 1)
Quarter: 2014Q2

REPORT INFORMATION
  Report Type: Report from Study
  Country: CH (occurrence: CH)
  Receive Date: 20140624
  Receipt Date: 20140624
  Transmission Date: 20141212
  Serious: Yes (Other)
  Sender: FDA-Public Use
  Company Number: CH-MYLANLABS-2014S1014446

PATIENT
  Age: 79 Year
  Sex: Female

DRUGS (3)
  1. AZATHIOPRINE [Suspect]
     Indication: ACCIDENTAL OVERDOSE
     Route: 065
  2. AZATHIOPRINE [Interacting]
     Indication: OFF LABEL USE
     Route: 065
  3. ALLOPURINOL [Interacting]
     Route: 065

REACTIONS (5)
  - Accidental overdose [Unknown]
  - Agranulocytosis [Unknown]
  - Sepsis [Unknown]
  - Drug interaction [Unknown]
  - Drug administration error [Unknown]
